FAERS Safety Report 4523668-8 (Version None)
Quarter: 2004Q4

REPORT INFORMATION
  Report Type: 
  Country: None (occurrence: None)
  Receive Date: 20041210
  Receipt Date: 20041210
  Transmission Date: 20050328
  Serious: Yes (Hospitalization)
  Sender: FDA-Public Use
  Company Number: None

PATIENT
  Sex: Female
  Weight: 78 kg

DRUGS (6)
  1. PLAVIX [Suspect]
     Indication: CEREBROVASCULAR ACCIDENT
     Dosage: 75 MG ORALLY DAILY
     Dates: start: 20040905, end: 20041105
  2. ZOLOFT [Concomitant]
  3. DITROPAN XL [Concomitant]
  4. NEXIUM [Concomitant]
  5. LIPITOR [Concomitant]
  6. ECOTRIN [Concomitant]

REACTIONS (6)
  - CELLULITIS ORBITAL [None]
  - DRUG INEFFECTIVE [None]
  - FEELING COLD [None]
  - NEUTROPENIA [None]
  - SKIN INFECTION [None]
  - WHITE BLOOD CELL COUNT DECREASED [None]
